FAERS Safety Report 7007570-8 (Version None)
Quarter: 2010Q2

REPORT INFORMATION
  Report Type: 
  Country: None (occurrence: None)
  Receive Date: 20100225
  Receipt Date: 20091028
  Transmission Date: 20101027
  Serious: No
  Sender: FDA-Public Use
  Company Number: US-JNJFOC-20091009220

PATIENT
  Age: 7 Year
  Sex: Female
  Weight: 24.4942 kg

DRUGS (5)
  1. CHILDREN'S MOTRIN [Suspect]
     Indication: PYREXIA
     Dosage: 200 MG, 1 IN 6 HOUR, ORAL
     Route: 048
     Dates: start: 20091026, end: 20091028
  2. ACETAMINOPHEN [Concomitant]
  3. ZITHROMAX [Concomitant]
  4. DIMETAPP (DIMETAPP /00127601/) [Concomitant]
  5. XOPENEX (LEVOSALBUTATMOL) [Concomitant]

REACTIONS (1)
  - EPISTAXIS [None]
